FAERS Safety Report 18804597 (Version 1)
Quarter: 2021Q1

REPORT INFORMATION
  Report Type: Spontaneous
  Country: US (occurrence: US)
  Receive Date: 20210129
  Receipt Date: 20210129
  Transmission Date: 20210419
  Serious: No
  Sender: FDA-Public Use
  Company Number: US-UCBSA-2020034216

PATIENT
  Sex: Female
  Weight: 54.43 kg

DRUGS (3)
  1. VITAMINS NOS [Concomitant]
     Active Substance: VITAMINS
     Indication: PRODUCT USED FOR UNKNOWN INDICATION
  2. KEPPRA XR [Suspect]
     Active Substance: LEVETIRACETAM
     Indication: SEIZURE
     Dosage: 500 MILLIGRAM, ONCE DAILY (QD)
  3. KEPPRA XR [Suspect]
     Active Substance: LEVETIRACETAM
     Dosage: 500 MILLIGRAM, 3X/DAY (TID)

REACTIONS (3)
  - Erythema [Unknown]
  - Onychomycosis [Not Recovered/Not Resolved]
  - Product use issue [Unknown]
